FAERS Safety Report 9684697 (Version 3)
Quarter: 2014Q4

REPORT INFORMATION
  Report Type: Spontaneous
  Country: US (occurrence: None)
  Receive Date: 20131108
  Receipt Date: 20141212
  Transmission Date: 20150529
  Serious: Yes (Other)
  Sender: FDA-Public Use
  Company Number: 1713747-2013-99974

PATIENT

DRUGS (5)
  1. 0.9% SODIUM CHLORIDE INJECTION, USP IN MINI-BAG PLUS CONTAINER [Suspect]
     Active Substance: SODIUM CHLORIDE
     Indication: HAEMODIALYSIS
     Dates: start: 20131008
  2. FRESENIUS DIALYZER [Concomitant]
  3. FRESENIUS 2008T HEMODIALYIS SYSTEM [Concomitant]
  4. FRESENIUS TUBING [Concomitant]
  5. FRESENIUS CONCENTRATES [Concomitant]

REACTIONS (1)
  - Cardiac disorder [None]

NARRATIVE: CASE EVENT DATE: 20131007
